FAERS Safety Report 23703533 (Version 3)
Quarter: 2024Q3

REPORT INFORMATION
  Report Type: Spontaneous
  Country: CA (occurrence: CA)
  Receive Date: 20240403
  Receipt Date: 20240705
  Transmission Date: 20241016
  Serious: Yes (Hospitalization, Other)
  Sender: PURDUE
  Company Number: None

PATIENT
  Age: 62 Year
  Sex: Female

DRUGS (11)
  1. OXYCODONE HYDROCHLORIDE [Suspect]
     Active Substance: OXYCODONE HYDROCHLORIDE
     Indication: Pain
     Dosage: AS REQUIRED
     Route: 048
  2. ACETAMINOPHEN\CODEINE PHOSPHATE [Suspect]
     Active Substance: ACETAMINOPHEN\CODEINE PHOSPHATE
     Indication: Pain
     Dosage: AS REQUIRED
     Route: 048
  3. CONTRAVE [Suspect]
     Active Substance: BUPROPION HYDROCHLORIDE\NALTREXONE HYDROCHLORIDE
     Indication: Weight control
     Dosage: UNK
     Route: 048
  4. CONTRAVE [Suspect]
     Active Substance: BUPROPION HYDROCHLORIDE\NALTREXONE HYDROCHLORIDE
     Dosage: 2 DOSAGE FORM, 1 EVERY 12 HOURS
     Route: 048
  5. CONTRAVE [Suspect]
     Active Substance: BUPROPION HYDROCHLORIDE\NALTREXONE HYDROCHLORIDE
     Dosage: UNK
     Route: 048
  6. CONTRAVE [Suspect]
     Active Substance: BUPROPION HYDROCHLORIDE\NALTREXONE HYDROCHLORIDE
     Indication: Weight control
     Dosage: UNK
     Route: 048
  7. AMLODIPINE [Concomitant]
     Active Substance: AMLODIPINE BESYLATE
     Indication: Hypertension
     Dosage: 1 EVERY 1 DAYS
     Route: 048
  8. GABAPENTIN [Concomitant]
     Active Substance: GABAPENTIN
     Indication: Pain
     Dosage: 1 EVERY 1 DAYS
     Route: 048
  9. METFORMIN HYDROCHLORIDE\SITAGLIPTIN PHOSPHATE [Concomitant]
     Active Substance: METFORMIN HYDROCHLORIDE\SITAGLIPTIN PHOSPHATE
     Indication: Diabetes mellitus
     Dosage: 2.5 MILLIGRAM, 1 EVERY 12 HOURS
     Route: 048
  10. MIRTAZAPINE [Concomitant]
     Active Substance: MIRTAZAPINE
     Indication: Depression
     Dosage: 30 MILLIGRAM, 1 EVERY 1 DAYS
     Route: 048
  11. DULOXETINE [Concomitant]
     Active Substance: DULOXETINE
     Indication: Depression
     Dosage: 30 MILLIGRAM, 1 EVERY 1 DAYS
     Route: 048

REACTIONS (10)
  - COVID-19 [Recovered/Resolved]
  - Contraindicated product administered [Recovered/Resolved]
  - Intentional product use issue [Recovered/Resolved]
  - Labelled drug-drug interaction medication error [Recovered/Resolved]
  - Night sweats [Recovered/Resolved]
  - Spinal operation [Recovered/Resolved]
  - Therapy interrupted [Recovered/Resolved]
  - Thrombosis [Recovered/Resolved]
  - Product use issue [Recovered/Resolved]
  - Poor quality sleep [Recovered/Resolved]
